FAERS Safety Report 23743728 (Version 1)
Quarter: 2024Q2

REPORT INFORMATION
  Report Type: Spontaneous
  Country: US (occurrence: None)
  Receive Date: 20240415
  Receipt Date: 20240415
  Transmission Date: 20240715
  Serious: No
  Sender: FDA-Public Use
  Company Number: None

PATIENT
  Age: 36 Year
  Sex: Female
  Weight: 79.38 kg

DRUGS (1)
  1. SKYRIZI [Suspect]
     Active Substance: RISANKIZUMAB-RZAA
     Indication: Psoriasis
     Dosage: INJECT 150MG (1 PEN) SUBCUTANEOUSLY AT WEEK 4  THEN  EVERY 12 WEEKS  AS DIRECTED
     Route: 058
     Dates: start: 202403

REACTIONS (3)
  - Feeling abnormal [None]
  - Nasopharyngitis [None]
  - Multiple allergies [None]
